FAERS Safety Report 7604178-8 (Version None)
Quarter: 2011Q3

REPORT INFORMATION
  Report Type: 
  Country: None (occurrence: None)
  Receive Date: 20110712
  Receipt Date: 20110705
  Transmission Date: 20111222
  Serious: Yes (Hospitalization)
  Sender: FDA-Public Use
  Company Number: US-MERCK-1106USA01163

PATIENT
  Sex: Female

DRUGS (2)
  1. ZOCOR [Suspect]
     Route: 048
     Dates: start: 20060601
  2. FLUCONAZOLE [Concomitant]
     Dosage: HIGH DOSE
     Route: 065

REACTIONS (2)
  - INFECTION [None]
  - RHABDOMYOLYSIS [None]
